FAERS Safety Report 7676553-7 (Version None)
Quarter: 2011Q3

REPORT INFORMATION
  Report Type: 
  Country: None (occurrence: None)
  Receive Date: 20110811
  Receipt Date: 20110803
  Transmission Date: 20111222
  Serious: Yes (Other)
  Sender: FDA-Public Use
  Company Number: ES-TEVA-295759ISR

PATIENT
  Age: 31 Year
  Sex: Female

DRUGS (1)
  1. COPAXONE [Suspect]
     Dosage: 20 MILLIGRAM;
     Route: 058

REACTIONS (1)
  - EMBOLIA CUTIS MEDICAMENTOSA [None]
